FAERS Safety Report 12311707 (Version 1)
Quarter: 2016Q2

REPORT INFORMATION
  Report Type: Not Available
  Country: US (occurrence: US)
  Receive Date: 20160427
  Receipt Date: 20160427
  Transmission Date: 20160815
  Serious: Yes (Other)
  Sender: FDA-Public Use
  Company Number: US-WARNER CHILCOTT, LLC-1051115

PATIENT
  Age: 65 Year
  Sex: Female

DRUGS (3)
  1. ACTONEL [Suspect]
     Active Substance: RISEDRONATE SODIUM
     Indication: OSTEOPOROSIS
     Route: 048
     Dates: start: 20030415, end: 20051206
  2. BONIVA [Suspect]
     Active Substance: IBANDRONATE SODIUM
     Dates: start: 20051206, end: 20111118
  3. FOSAMAX [Suspect]
     Active Substance: ALENDRONATE SODIUM
     Route: 048
     Dates: start: 19960124, end: 20030415

REACTIONS (7)
  - Stress fracture [Unknown]
  - Low turnover osteopathy [Unknown]
  - Depression [Unknown]
  - Femur fracture [Unknown]
  - Bone disorder [Unknown]
  - Pain [Unknown]
  - Pathological fracture [Unknown]
